FAERS Safety Report 20981441 (Version 3)
Quarter: 2023Q1

REPORT INFORMATION
  Report Type: Spontaneous
  Country: US (occurrence: US)
  Receive Date: 20220620
  Receipt Date: 20230301
  Transmission Date: 20230418
  Serious: Yes (Other)
  Sender: FDA-Public Use
  Company Number: US-PFIZER INC-202200591910

PATIENT
  Age: 59 Year
  Sex: Female

DRUGS (1)
  1. XELJANZ XR [Suspect]
     Active Substance: TOFACITINIB CITRATE
     Dosage: 11 MG
     Dates: start: 20210701

REACTIONS (11)
  - Suicidal ideation [Unknown]
  - Product dose omission issue [Unknown]
  - Abdominal pain [Unknown]
  - Headache [Unknown]
  - Arthritis [Unknown]
  - Hyperhidrosis [Unknown]
  - Nightmare [Unknown]
  - Muscular weakness [Unknown]
  - Decreased appetite [Unknown]
  - Weight increased [Not Recovered/Not Resolved]
  - Cyclic vomiting syndrome [Unknown]
